FAERS Safety Report 18925177 (Version 2)
Quarter: 2021Q1

REPORT INFORMATION
  Report Type: Spontaneous
  Country: US (occurrence: US)
  Receive Date: 20210222
  Receipt Date: 20210312
  Transmission Date: 20210420
  Serious: Yes (Other)
  Sender: FDA-Public Use
  Company Number: US-GILEAD-2021-0517870

PATIENT
  Age: 70 Year
  Sex: Male
  Weight: 97.05 kg

DRUGS (11)
  1. SULFAMETHOXAZOLE AND TRIMETHOPRIM [Concomitant]
     Active Substance: SULFAMETHOXAZOLE\TRIMETHOPRIM
  2. VEKLURY [Suspect]
     Active Substance: REMDESIVIR
     Dosage: 100 MG
     Route: 042
     Dates: start: 20210205
  3. ACETAMINOPHEN. [Concomitant]
     Active Substance: ACETAMINOPHEN
  4. SODIUM CHLORIDE. [Concomitant]
     Active Substance: SODIUM CHLORIDE
  5. DEXTROSE. [Concomitant]
     Active Substance: DEXTROSE
  6. PLASMA [Concomitant]
     Active Substance: HUMAN PLASMA
  7. VANCOMYCIN [Concomitant]
     Active Substance: VANCOMYCIN
  8. VEKLURY [Suspect]
     Active Substance: REMDESIVIR
     Indication: COVID-19
     Dosage: 200 MG
     Route: 042
     Dates: start: 20210204, end: 20210204
  9. MEROPENEM. [Concomitant]
     Active Substance: MEROPENEM
  10. VORICONAZOLE. [Concomitant]
     Active Substance: VORICONAZOLE
  11. ACYCLOVIR [ACICLOVIR] [Concomitant]
     Active Substance: ACYCLOVIR

REACTIONS (1)
  - Drug ineffective [Not Recovered/Not Resolved]
